FAERS Safety Report 7021696-4 (Version None)
Quarter: 2010Q3

REPORT INFORMATION
  Report Type: 
  Country: None (occurrence: None)
  Receive Date: 20100930
  Receipt Date: 20100922
  Transmission Date: 20110219
  Serious: Yes (Other)
  Sender: FDA-Public Use
  Company Number: DE-BIOGENIDEC-2010BI007865

PATIENT
  Age: 29 Year
  Sex: Female

DRUGS (3)
  1. TYSABRI [Suspect]
     Indication: MULTIPLE SCLEROSIS
     Route: 042
     Dates: start: 20070816, end: 20091218
  2. TYSABRI [Suspect]
     Route: 042
     Dates: start: 20100601
  3. GLATIRAMER ACETATE [Concomitant]
     Indication: MULTIPLE SCLEROSIS
     Dates: start: 20100301

REACTIONS (1)
  - MALIGNANT MELANOMA [None]
